FAERS Safety Report 5619288-4 (Version None)
Quarter: 2008Q1

REPORT INFORMATION
  Report Type: 
  Country: None (occurrence: None)
  Receive Date: 20080205
  Receipt Date: 20080124
  Transmission Date: 20080703
  Serious: Yes (Death)
  Sender: FDA-Public Use
  Company Number: L08-USA-00315-03

PATIENT
  Age: 26 Year
  Sex: Male

DRUGS (7)
  1. ESCITALOPRAM [Suspect]
  2. LAMOTRIGINE [Suspect]
  3. PYRAZOLOPYRIMIDINE (PHENAZOPYRIDINE HYDROCHLORIDE) [Suspect]
  4. ZOLPIDEM [Suspect]
  5. RAMELTEON [Suspect]
  6. ALPRAZOLAM [Suspect]
  7. IBUPROFEN [Suspect]

REACTIONS (2)
  - COMPLETED SUICIDE [None]
  - MULTIPLE DRUG OVERDOSE INTENTIONAL [None]
